FAERS Safety Report 20109064 (Version 1)
Quarter: 2021Q4

REPORT INFORMATION
  Report Type: Spontaneous
  Country: FR (occurrence: FR)
  Receive Date: 20211124
  Receipt Date: 20211124
  Transmission Date: 20220303
  Serious: Yes (Other)
  Sender: FDA-Public Use
  Company Number: None

PATIENT
  Age: 46 Year
  Sex: Female

DRUGS (2)
  1. LINEZOLID [Suspect]
     Active Substance: LINEZOLID
     Indication: Osteomyelitis
     Dosage: 1200 MG, DAILY (2 X 600 MG/DAILY)
     Route: 048
     Dates: start: 20210624, end: 20210709
  2. TEDIZOLID [Suspect]
     Active Substance: TEDIZOLID
     Indication: Osteomyelitis
     Dosage: 200 MG, ONCE DAILY
     Route: 048
     Dates: start: 20210709, end: 20210730

REACTIONS (3)
  - Leukopenia [Recovered/Resolved]
  - Neutropenia [Recovered/Resolved]
  - Off label use [Unknown]

NARRATIVE: CASE EVENT DATE: 20210624
